FAERS Safety Report 6923712-4 (Version None)
Quarter: 2010Q3

REPORT INFORMATION
  Report Type: 
  Country: None (occurrence: None)
  Receive Date: 20100813
  Receipt Date: 20100810
  Transmission Date: 20110219
  Serious: Yes (Other)
  Sender: FDA-Public Use
  Company Number: CN-BRISTOL-MYERS SQUIBB COMPANY-15234404

PATIENT
  Age: 62 Year
  Sex: Female

DRUGS (2)
  1. BARACLUDE [Suspect]
     Indication: HEPATITIS B
     Dosage: FOR 20 DAYS
     Route: 048
     Dates: start: 20100301
  2. FUZHENG HUAYU [Concomitant]

REACTIONS (5)
  - DIZZINESS [None]
  - FACE OEDEMA [None]
  - HEADACHE [None]
  - RASH [None]
  - RETINAL HAEMORRHAGE [None]
